FAERS Safety Report 22049136 (Version 1)
Quarter: 2023Q1

REPORT INFORMATION
  Report Type: Spontaneous
  Country: FR (occurrence: FR)
  Receive Date: 20230301
  Receipt Date: 20230301
  Transmission Date: 20230417
  Serious: Yes (Life-Threatening, Other)
  Sender: FDA-Public Use
  Company Number: None

PATIENT

DRUGS (1)
  1. NUCALA [Suspect]
     Active Substance: MEPOLIZUMAB
     Indication: Asthma
     Dosage: 1 DF
     Route: 058
     Dates: start: 20211224, end: 20211224

REACTIONS (2)
  - Cerebrovascular accident [Not Recovered/Not Resolved]
  - Vertebrobasilar artery dissection [Not Recovered/Not Resolved]

NARRATIVE: CASE EVENT DATE: 20211226
